FAERS Safety Report 14319132 (Version 1)
Quarter: 2017Q4

REPORT INFORMATION
  Report Type: Spontaneous
  Country: US (occurrence: US)
  Receive Date: 20171222
  Receipt Date: 20171222
  Transmission Date: 20180321
  Serious: Yes (Death, Hospitalization)
  Sender: FDA-Public Use
  Company Number: US-PFIZER INC-2017543547

PATIENT
  Age: 69 Year
  Sex: Male

DRUGS (2)
  1. NALOXONE HCL [Suspect]
     Active Substance: NALOXONE HYDROCHLORIDE
     Dosage: UNK
     Route: 055
  2. HEROIN [Suspect]
     Active Substance: DIAMORPHINE
     Dosage: UNK
     Route: 055

REACTIONS (4)
  - Respiratory arrest [Fatal]
  - Cardiac arrest [Fatal]
  - Death [Fatal]
  - Intentional product misuse [Fatal]

NARRATIVE: CASE EVENT DATE: 2016
